FAERS Safety Report 10761784 (Version 1)
Quarter: 2015Q1

REPORT INFORMATION
  Report Type: Spontaneous
  Country: US (occurrence: None)
  Receive Date: 20150128
  Receipt Date: 20150128
  Transmission Date: 20150721
  Serious: Yes (Hospitalization, Other)
  Sender: FDA-Public Use
  Company Number: 1468494

PATIENT
  Age: 66 Year
  Sex: Male

DRUGS (7)
  1. CYCLOPHOSPHAMIDE (CYCLOPHOSPHAMIDE) [Suspect]
     Active Substance: CYCLOPHOSPHAMIDE
     Indication: SPINAL CORD INJURY
  2. VINCRISTINE (VINCRISTINE) [Suspect]
     Active Substance: VINCRISTINE
     Indication: SPINAL CORD INJURY
  3. PREDNISOLONE (PREDNISOLONE) [Suspect]
     Active Substance: PREDNISOLONE
     Indication: SPINAL CORD INJURY
  4. SULFAMETHOXAZOLE/TRIMETHOPRIM [Suspect]
     Active Substance: SULFAMETHOXAZOLE\TRIMETHOPRIM
     Indication: PNEUMOCYSTIS JIROVECII INFECTION
     Dosage: TWO TABLETS EVERY 6 HOURS
     Route: 048
  5. DOXORUBICIN (DOXORUBICIN) [Suspect]
     Active Substance: DOXORUBICIN
     Indication: SPINAL CORD INJURY
  6. ACYCLOVIR (ACICLOVIR) (ACICLOVIR) [Suspect]
     Active Substance: ACYCLOVIR
     Indication: SPINAL CORD INJURY
  7. RITUXIMAB (RITUXIMAB) [Suspect]
     Active Substance: RITUXIMAB
     Indication: SPINAL CORD INJURY

REACTIONS (4)
  - Asterixis [None]
  - Postural tremor [None]
  - Pneumocystis jirovecii pneumonia [None]
  - Myoclonus [None]
